FAERS Safety Report 6795206-0 (Version None)
Quarter: 2010Q2

REPORT INFORMATION
  Report Type: 
  Country: None (occurrence: None)
  Receive Date: 20100625
  Receipt Date: 20100621
  Transmission Date: 20101027
  Serious: Yes (Death, Hospitalization, Other)
  Sender: FDA-Public Use
  Company Number: IR-ROCHE-710637

PATIENT
  Age: 22 Year
  Sex: Male

DRUGS (8)
  1. GANCICLOVIR SODIUM [Suspect]
     Route: 065
  2. CEFTRIAXONE SODIUM [Suspect]
     Route: 042
  3. SULFAMETHOXAZOLE AND TRIMETHOPRIM [Suspect]
     Indication: NOCARDIOSIS
     Route: 048
  4. CYCLOPHOSPHAMIDE [Suspect]
     Indication: BONE MARROW TRANSPLANT
     Route: 065
  5. BUSULFEX [Suspect]
     Indication: BONE MARROW TRANSPLANT
     Route: 065
  6. CYCLOSPORINE [Suspect]
     Indication: PROPHYLAXIS AGAINST GRAFT VERSUS HOST DISEASE
     Route: 065
  7. METHOTREXATE [Suspect]
     Indication: PROPHYLAXIS AGAINST GRAFT VERSUS HOST DISEASE
     Route: 065
  8. METHYLPREDNISOLONE [Suspect]
     Indication: GRAFT VERSUS HOST DISEASE
     Route: 065

REACTIONS (7)
  - BRAIN ABSCESS [None]
  - GRAFT VERSUS HOST DISEASE [None]
  - GRAND MAL CONVULSION [None]
  - MALIGNANT NEOPLASM PROGRESSION [None]
  - NOCARDIOSIS [None]
  - ORCHITIS [None]
  - PANCYTOPENIA [None]
